FAERS Safety Report 9338333 (Version 1)
Quarter: 2013Q2

REPORT INFORMATION
  Report Type: Spontaneous
  Country: US (occurrence: US)
  Receive Date: 20130610
  Receipt Date: 20130610
  Transmission Date: 20140414
  Serious: No
  Sender: FDA-Public Use
  Company Number: US-PFIZER INC-2013172310

PATIENT
  Age: 53 Year
  Sex: Female

DRUGS (8)
  1. XELJANZ [Suspect]
     Indication: RHEUMATOID ARTHRITIS
     Dosage: 5 MG, 2X/DAY
     Route: 048
  2. MENEST [Concomitant]
     Dosage: 0.3 MG, UNK
     Route: 048
  3. LOTENSIN HCT [Concomitant]
     Dosage: BENAZEPRIL HYDROCHLORIDE (10), HYDROCHLOROTHIAZIDE (12.5)
     Route: 048
  4. LYRICA [Concomitant]
     Dosage: 200 MG, UNK
     Route: 048
  5. TRAZODONE [Concomitant]
     Dosage: 100 MG, UNK
     Route: 048
  6. ASPIRIN CHLD [Concomitant]
     Dosage: 81 MG, UNK
     Route: 048
  7. FLONASE SPR [Concomitant]
     Dosage: 0.05 %, UNK
     Route: 045
  8. CALCIUM+D [Concomitant]
     Dosage: UNK
     Route: 048

REACTIONS (4)
  - Bronchitis [Recovered/Resolved]
  - Contusion [Unknown]
  - Scratch [Unknown]
  - Erythema [Unknown]
